FAERS Safety Report 9195975 (Version 5)
Quarter: 2013Q4

REPORT INFORMATION
  Report Type: Spontaneous
  Country: JP (occurrence: JP)
  Receive Date: 20130328
  Receipt Date: 20131011
  Transmission Date: 20140711
  Serious: Yes (Hospitalization)
  Sender: FDA-Public Use
  Company Number: PHHY2013JP029321

PATIENT
  Age: 29 Year
  Sex: Female
  Weight: 45 kg

DRUGS (5)
  1. TEGRETOL [Suspect]
     Indication: TEMPORAL LOBE EPILEPSY
     Dosage: 800 MG, DAILY
     Route: 048
     Dates: start: 20121213, end: 20130318
  2. SULPIRIDE [Suspect]
     Indication: DEPRESSIVE SYMPTOM
     Dosage: 100 MG, DAILY
     Route: 048
     Dates: start: 201302, end: 20130318
  3. E KEPPRA [Suspect]
     Indication: TEMPORAL LOBE EPILEPSY
     Dosage: 2000 MG, DAILY
     Route: 048
     Dates: start: 20121213, end: 20130318
  4. LAMICTAL [Suspect]
     Indication: TEMPORAL LOBE EPILEPSY
     Dosage: 100 MG, DAILY
     Route: 048
     Dates: start: 20121213, end: 20130318
  5. RISPERDAL [Suspect]
     Indication: DEPRESSIVE SYMPTOM
     Dosage: 1 MG, DAILY
     Route: 048
     Dates: start: 201302, end: 20130318

REACTIONS (10)
  - Renal failure acute [Recovered/Resolved]
  - Hyponatraemia [Recovered/Resolved]
  - Subarachnoid haemorrhage [Unknown]
  - Vertebral artery dissection [Unknown]
  - Malaise [Unknown]
  - Nausea [Unknown]
  - Epilepsy [Unknown]
  - Eye movement disorder [Unknown]
  - Altered state of consciousness [Recovered/Resolved]
  - Musculoskeletal stiffness [Unknown]
